FAERS Safety Report 18958973 (Version 3)
Quarter: 2021Q2

REPORT INFORMATION
  Report Type: Report from Study
  Country: None (occurrence: US)
  Receive Date: 20210302
  Receipt Date: 20210525
  Transmission Date: 20210717
  Serious: Yes (Other)
  Sender: FDA-Public Use
  Company Number: US-ABBVIE-21K-163-3794460-00

PATIENT
  Sex: Female
  Weight: 65.38 kg

DRUGS (13)
  1. VITAMIN B4 [Concomitant]
     Indication: SUPPLEMENTATION THERAPY
  2. DEXILANT [Concomitant]
     Active Substance: DEXLANSOPRAZOLE
     Indication: GASTRIC DISORDER
  3. TRIPLE OMEGA 3 6 9 [Concomitant]
     Indication: SUPPLEMENTATION THERAPY
  4. COVID?19 VACCINE NOS. [Concomitant]
     Active Substance: COVID-19 VACCINE NOS
     Indication: COVID-19 IMMUNISATION
     Dosage: PFIZER
     Route: 030
     Dates: start: 20210315, end: 20210315
  5. MAGNESIUM [Concomitant]
     Active Substance: MAGNESIUM
     Indication: SUPPLEMENTATION THERAPY
  6. HUMIRA [Suspect]
     Active Substance: ADALIMUMAB
     Indication: RHEUMATOID ARTHRITIS
     Route: 058
     Dates: start: 2017
  7. ALLOPURINOL. [Concomitant]
     Active Substance: ALLOPURINOL
     Indication: MUSCULOSKELETAL DISORDER
  8. HUMIRA [Suspect]
     Active Substance: ADALIMUMAB
     Indication: ANKYLOSING SPONDYLITIS
     Route: 058
     Dates: start: 2011
  9. VITAMIN B5 [Concomitant]
     Active Substance: PANTOTHENIC ACID
     Indication: SUPPLEMENTATION THERAPY
  10. KEPPRA [Concomitant]
     Active Substance: LEVETIRACETAM
     Indication: SEIZURE
  11. FAMOTIDINE. [Concomitant]
     Active Substance: FAMOTIDINE
     Indication: GASTRIC DISORDER
  12. VITAMIN B12 [Concomitant]
     Active Substance: CYANOCOBALAMIN
     Indication: SUPPLEMENTATION THERAPY
  13. POTASSIUM [Concomitant]
     Active Substance: POTASSIUM
     Indication: CARDIAC DISORDER

REACTIONS (13)
  - Seizure [Recovered/Resolved]
  - Injury [Unknown]
  - Vomiting [Recovering/Resolving]
  - Restless legs syndrome [Recovering/Resolving]
  - Fatigue [Recovered/Resolved]
  - Dysphagia [Recovering/Resolving]
  - Nausea [Unknown]
  - Stress [Unknown]
  - Migraine [Recovering/Resolving]
  - Seizure [Recovered/Resolved]
  - Peripheral swelling [Recovering/Resolving]
  - Insomnia [Recovering/Resolving]
  - Fall [Recovering/Resolving]

NARRATIVE: CASE EVENT DATE: 2016
